FAERS Safety Report 7770959 (Version 3)
Quarter: 2014Q1

REPORT INFORMATION
  Report Type: Spontaneous
  Country: US (occurrence: US)
  Receive Date: 20110124
  Receipt Date: 20140115
  Transmission Date: 20141002
  Serious: Yes (Other)
  Sender: FDA-Public Use
  Company Number: US-BAYER-2011-006841

PATIENT
  Age: 21 Year
  Sex: Female
  Weight: 68.03 kg

DRUGS (19)
  1. YASMIN [Suspect]
     Indication: CONTRACEPTION
     Dosage: UNK
     Dates: start: 200806, end: 200812
  2. YASMIN [Suspect]
     Indication: ACNE
  3. YASMIN [Suspect]
     Indication: PREMENSTRUAL SYNDROME
  4. YAZ [Suspect]
     Indication: CONTRACEPTION
     Dosage: UNK
     Dates: start: 200806, end: 200908
  5. YAZ [Suspect]
     Indication: ACNE
  6. YAZ [Suspect]
     Indication: PREMENSTRUAL SYNDROME
  7. OCELLA [Suspect]
     Indication: CONTRACEPTION
     Dosage: UNK
     Dates: start: 200901, end: 200908
  8. OCELLA [Suspect]
     Indication: ACNE
  9. OCELLA [Suspect]
     Indication: PREMENSTRUAL SYNDROME
  10. ADVIL [Concomitant]
     Dosage: UNK UNK, PRN
  11. TOPAMAX [Concomitant]
     Indication: CLONIC CONVULSION
     Dosage: UNK
     Dates: start: 2006, end: 2008
  12. LAMICTAL [Concomitant]
     Indication: CLONIC CONVULSION
     Dosage: UNK
     Dates: start: 2007, end: 2008
  13. LEXAPRO [Concomitant]
     Indication: CLONIC CONVULSION
     Dosage: UNK
     Dates: start: 2007, end: 2008
  14. ASTELIN [Concomitant]
     Indication: MULTIPLE ALLERGIES
     Dosage: UNK
     Dates: start: 2005
  15. PROMETHAZINE [Concomitant]
     Dosage: 25 MG, UNK
     Dates: start: 20090407
  16. HYDROCODONE W/APAP [Concomitant]
     Dosage: UNK
     Dates: start: 20090407
  17. AMOXICILLIN W/CLAVULANIC ACID [Concomitant]
     Dosage: UNK
     Dates: start: 20090407
  18. SMZ-TMP DS [Concomitant]
     Dosage: UNK
     Dates: start: 20090209
  19. DICYCLOMINE [Concomitant]
     Dosage: 10 MG, UNK
     Dates: start: 20090209

REACTIONS (6)
  - Gallbladder non-functioning [None]
  - Biliary dyskinesia [None]
  - Cholecystitis chronic [None]
  - Pain [None]
  - Emotional distress [None]
  - Anxiety [None]
